FAERS Safety Report 10463715 (Version 1)
Quarter: 2014Q3

REPORT INFORMATION
  Report Type: Report from Study
  Country: AU (occurrence: AU)
  Receive Date: 20140919
  Receipt Date: 20140919
  Transmission Date: 20150326
  Serious: Yes (Hospitalization)
  Sender: FDA-Public Use
  Company Number: PHHY2014AU117019

PATIENT
  Sex: Male
  Weight: 84.8 kg

DRUGS (1)
  1. CLOZARIL [Suspect]
     Active Substance: CLOZAPINE
     Indication: SCHIZOPHRENIA
     Dosage: 50 MG, UNK (NOCTE)
     Route: 048
     Dates: start: 20140412, end: 20140730

REACTIONS (1)
  - Circumstance or information capable of leading to medication error [Unknown]
